FAERS Safety Report 7218664-6 (Version None)
Quarter: 2011Q1

REPORT INFORMATION
  Report Type: 
  Country: None (occurrence: None)
  Receive Date: 20110110
  Receipt Date: 20100802
  Transmission Date: 20110831
  Serious: No
  Sender: FDA-Public Use
  Company Number: US-ABBOTT-10P-163-0663005-00

PATIENT
  Sex: Female

DRUGS (2)
  1. CELEBREX [Concomitant]
     Indication: RHEUMATOID ARTHRITIS
  2. VICODIN [Suspect]
     Indication: RHEUMATOID ARTHRITIS
     Dosage: 5/500 MG

REACTIONS (1)
  - DRUG INTOLERANCE [None]
